FAERS Safety Report 23589910 (Version 1)
Quarter: 2024Q1

REPORT INFORMATION
  Report Type: Spontaneous
  Country: JP (occurrence: JP)
  Receive Date: 20240304
  Receipt Date: 20240304
  Transmission Date: 20240409
  Serious: Yes (Death, Other)
  Sender: FDA-Public Use
  Company Number: JP-BRISTOL-MYERS SQUIBB COMPANY-2024-028960

PATIENT
  Age: 79 Year
  Sex: Male
  Weight: 75.6 kg

DRUGS (10)
  1. ELIQUIS [Suspect]
     Active Substance: APIXABAN
     Indication: Cardiac amyloidosis
     Route: 048
     Dates: start: 20200710, end: 20210225
  2. SPIRONOLACTONE [Suspect]
     Active Substance: SPIRONOLACTONE
     Indication: Cardiac amyloidosis
     Route: 048
     Dates: start: 20200710, end: 20210225
  3. VYNDAQEL [Concomitant]
     Active Substance: TAFAMIDIS MEGLUMINE
     Indication: Cardiac amyloidosis
     Dates: start: 20201211, end: 20210207
  4. FUROSEMIDE [Concomitant]
     Active Substance: FUROSEMIDE
     Indication: Cardiac amyloidosis
     Route: 042
     Dates: start: 20210213, end: 20210225
  5. DOBUTAMINE HYDROCHLORIDE [Concomitant]
     Active Substance: DOBUTAMINE HYDROCHLORIDE
     Indication: Cardiac amyloidosis
     Route: 042
     Dates: start: 20210213, end: 20210225
  6. TOLVAPTAN [Concomitant]
     Active Substance: TOLVAPTAN
     Indication: Cardiac amyloidosis
     Route: 048
     Dates: start: 20200714, end: 20210225
  7. DENOPAMINE [Concomitant]
     Active Substance: DENOPAMINE
     Indication: Cardiac amyloidosis
     Route: 048
     Dates: start: 20200722, end: 20210225
  8. AZOSEMIDE [Concomitant]
     Active Substance: AZOSEMIDE
     Indication: Cardiac amyloidosis
     Route: 048
     Dates: start: 20200710, end: 20210225
  9. CARVEDILOL [Concomitant]
     Active Substance: CARVEDILOL
     Indication: Cardiac amyloidosis
     Route: 048
     Dates: start: 20200710, end: 20210225
  10. ENALAPRIL MALEATE [Concomitant]
     Active Substance: ENALAPRIL MALEATE
     Indication: Cardiac amyloidosis
     Route: 048
     Dates: start: 20200808, end: 20210225

REACTIONS (2)
  - Cardiac failure congestive [Fatal]
  - Off label use [Unknown]

NARRATIVE: CASE EVENT DATE: 20210213
